FAERS Safety Report 5959082-8 (Version None)
Quarter: 2008Q4

REPORT INFORMATION
  Report Type: 
  Country: None (occurrence: None)
  Receive Date: 20081120
  Receipt Date: 20071025
  Transmission Date: 20090506
  Serious: No
  Sender: FDA-Public Use
  Company Number: A0689816A

PATIENT
  Age: 68 Year
  Sex: Male

DRUGS (1)
  1. WELLBUTRIN SR [Suspect]
     Indication: DEPRESSION
     Dosage: 100MG TWICE PER DAY
     Route: 048
     Dates: start: 20070718

REACTIONS (4)
  - BLOOD CATECHOLAMINES ABNORMAL [None]
  - MUSCLE SPASMS [None]
  - NOREPINEPHRINE INCREASED [None]
  - PALPITATIONS [None]
